FAERS Safety Report 15422939 (Version 3)
Quarter: 2018Q4

REPORT INFORMATION
  Report Type: Spontaneous
  Country: DE (occurrence: DE)
  Receive Date: 20180925
  Receipt Date: 20181211
  Transmission Date: 20190204
  Serious: Yes (Other)
  Sender: FDA-Public Use
  Company Number: DE-TOLMAR, INC.-2018DE009148

PATIENT

DRUGS (2)
  1. ELIGARD [Suspect]
     Active Substance: LEUPROLIDE ACETATE
     Indication: PROSTATE CANCER
     Dosage: 22.5 MG, 3-MONTHS INJECTION
     Route: 065
     Dates: start: 201706
  2. TRENANTONE [Suspect]
     Active Substance: LEUPROLIDE ACETATE
     Indication: PRODUCT USED FOR UNKNOWN INDICATION
     Dosage: UNK, UNK
     Route: 065
     Dates: start: 201609, end: 201705

REACTIONS (8)
  - Arrhythmia [Not Recovered/Not Resolved]
  - Arteriosclerosis coronary artery [Not Recovered/Not Resolved]
  - Atrial fibrillation [Not Recovered/Not Resolved]
  - Blood test abnormal [Unknown]
  - Blood cholesterol increased [Not Recovered/Not Resolved]
  - Anaemia [Unknown]
  - Pruritus [Not Recovered/Not Resolved]
  - Urethral haemorrhage [Not Recovered/Not Resolved]

NARRATIVE: CASE EVENT DATE: 201706
